FAERS Safety Report 5675766-3 (Version None)
Quarter: 2008Q1

REPORT INFORMATION
  Report Type: 
  Country: None (occurrence: None)
  Receive Date: 20080318
  Receipt Date: 20080302
  Transmission Date: 20080703
  Serious: Yes (Other)
  Sender: FDA-Public Use
  Company Number: 2008005708

PATIENT
  Age: 32 Year
  Sex: Male
  Weight: 104.3273 kg

DRUGS (3)
  1. SUDAFED S.A. [Suspect]
     Indication: HEADACHE
     Dates: start: 20080101
  2. CHANTIX [Suspect]
     Indication: SMOKING CESSATION THERAPY
     Dates: start: 20080225
  3. ATARAX [Concomitant]

REACTIONS (5)
  - BLOOD PRESSURE DIASTOLIC INCREASED [None]
  - CONDITION AGGRAVATED [None]
  - HEADACHE [None]
  - PHARYNGOLARYNGEAL PAIN [None]
  - TONSILLAR HYPERTROPHY [None]
